FAERS Safety Report 6466096-0 (Version None)
Quarter: 2009Q4

REPORT INFORMATION
  Report Type: 
  Country: None (occurrence: None)
  Receive Date: 20091127
  Receipt Date: 20091116
  Transmission Date: 20100525
  Serious: Yes (Hospitalization)
  Sender: FDA-Public Use
  Company Number: 2009003539

PATIENT
  Age: 85 Year
  Sex: Male
  Weight: 85.7 kg

DRUGS (3)
  1. TARCEVA [Suspect]
     Indication: OESOPHAGEAL CARCINOMA
     Dosage: 150 MG, QD, ORAL
     Route: 048
     Dates: start: 20091019
  2. ZANTAC 150 [Concomitant]
  3. METFORMIN HCL [Concomitant]

REACTIONS (2)
  - DEHYDRATION [None]
  - DYSPHAGIA [None]
